FAERS Safety Report 7075500-9 (Version None)
Quarter: 2010Q4

REPORT INFORMATION
  Report Type: 
  Country: None (occurrence: None)
  Receive Date: 20101030
  Receipt Date: 20101001
  Transmission Date: 20110411
  Serious: No
  Sender: FDA-Public Use
  Company Number: US-WYE-H17969210

PATIENT
  Sex: Female
  Weight: 54.48 kg

DRUGS (2)
  1. LYBREL [Suspect]
     Indication: MENSTRUAL CYCLE MANAGEMENT
     Dosage: DAILY
     Route: 048
     Dates: start: 20100701
  2. ZYRTEC [Concomitant]

REACTIONS (1)
  - METRORRHAGIA [None]
